FAERS Safety Report 9840063 (Version 1)
Quarter: 2014Q1

REPORT INFORMATION
  Report Type: Spontaneous
  Country: US (occurrence: None)
  Receive Date: 20140117
  Receipt Date: 20140117
  Transmission Date: 20141002
  Serious: Yes (Death)
  Sender: FDA-Public Use
  Company Number: None

PATIENT
  Age: 47 Year
  Sex: Female
  Weight: 69.4 kg

DRUGS (3)
  1. HUMIRA PEN [Suspect]
     Indication: COLITIS ULCERATIVE
     Route: 058
     Dates: start: 20130314, end: 20131227
  2. DICYCLOMINE [Concomitant]
  3. VALTREX [Concomitant]

REACTIONS (1)
  - Pneumonia [None]
